APPROVED DRUG PRODUCT: SILPHEN
Active Ingredient: DIPHENHYDRAMINE HYDROCHLORIDE
Strength: 12.5MG/5ML
Dosage Form/Route: SYRUP;ORAL
Application: A072646 | Product #001
Applicant: LANNETT CO INC
Approved: Feb 27, 1992 | RLD: No | RS: No | Type: DISCN